FAERS Safety Report 23113915 (Version 1)
Quarter: 2023Q4

REPORT INFORMATION
  Report Type: Spontaneous
  Country: GB (occurrence: GB)
  Receive Date: 20231027
  Receipt Date: 20231027
  Transmission Date: 20240110
  Serious: Yes (Other)
  Sender: FDA-Public Use
  Company Number: None

PATIENT
  Age: 65 Year
  Sex: Male
  Weight: 90 kg

DRUGS (2)
  1. PRAVASTATIN [Suspect]
     Active Substance: PRAVASTATIN
     Indication: Myocardial infarction
     Dosage: 10 MILLIGRAM, QD (NIGHT)
     Route: 065
     Dates: start: 20220701
  2. EZETIMIBE [Concomitant]
     Active Substance: EZETIMIBE
     Indication: Blood cholesterol decreased
     Dosage: UNK
     Route: 065
     Dates: start: 20220701

REACTIONS (2)
  - Arthralgia [Not Recovered/Not Resolved]
  - Muscle fatigue [Unknown]

NARRATIVE: CASE EVENT DATE: 20220701
